FAERS Safety Report 10260935 (Version 1)
Quarter: 2014Q2

REPORT INFORMATION
  Report Type: Spontaneous
  Country: AU (occurrence: AU)
  Receive Date: 20140626
  Receipt Date: 20140626
  Transmission Date: 20141212
  Serious: Yes (Hospitalization)
  Sender: FDA-Public Use
  Company Number: AU-ROCHE-1423360

PATIENT
  Age: 33 Year
  Sex: Male

DRUGS (2)
  1. CLONAZEPAM [Suspect]
     Indication: PRODUCT USED FOR UNKNOWN INDICATION
     Route: 065
  2. QUETIAPINE [Concomitant]

REACTIONS (2)
  - Overdose [Unknown]
  - Tachycardia [Unknown]
